FAERS Safety Report 13349289 (Version 2)
Quarter: 2018Q2

REPORT INFORMATION
  Report Type: Spontaneous
  Country: US (occurrence: US)
  Receive Date: 20170320
  Receipt Date: 20180417
  Transmission Date: 20180711
  Serious: No
  Sender: FDA-Public Use
  Company Number: US-TEVA-714697USA

PATIENT
  Sex: Female

DRUGS (2)
  1. ATENOLOL. [Suspect]
     Active Substance: ATENOLOL
     Indication: BLOOD PRESSURE ABNORMAL
     Route: 065
  2. ZETIA [Concomitant]
     Active Substance: EZETIMIBE
     Route: 065

REACTIONS (3)
  - Skin swelling [Unknown]
  - Rash [Not Recovered/Not Resolved]
  - Lip swelling [Not Recovered/Not Resolved]
